FAERS Safety Report 8177025 (Version 3)
Quarter: 2013Q1

REPORT INFORMATION
  Report Type: Report from Study
  Country: US (occurrence: US)
  Receive Date: 20111012
  Receipt Date: 20130219
  Transmission Date: 20140127
  Serious: Yes (Life-Threatening)
  Sender: FDA-Public Use
  Company Number: US-BRISTOL-MYERS SQUIBB COMPANY-16126138

PATIENT
  Age: 73 Year
  Sex: Male
  Weight: 78 kg

DRUGS (11)
  1. NOVOLOG [Concomitant]
  2. PANTOPRAZOLE [Concomitant]
  3. CARVEDILOL [Concomitant]
  4. LISINOPRIL [Concomitant]
  5. CETRIZINE [Concomitant]
  6. PACLITAXEL [Suspect]
     Indication: NON-SMALL CELL LUNG CANCER
     Dosage: LAST DOSE ON 06SEP2011
     Route: 042
     Dates: start: 20110725, end: 20110906
  7. CARBOPLATIN [Suspect]
     Indication: NON-SMALL CELL LUNG CANCER
     Dosage: LAST DOSE ON 06SEP2011
     Route: 042
     Dates: start: 20110725, end: 20110906
  8. BEVACIZUMAB [Suspect]
     Indication: NON-SMALL CELL LUNG CANCER
     Dosage: LAST DOSE ON 06SEP2011
     Route: 042
     Dates: start: 20110725, end: 20110906
  9. AUGMENTIN [Concomitant]
  10. CREON [Concomitant]
  11. LANTUS [Concomitant]

REACTIONS (1)
  - Suicidal ideation [Recovered/Resolved]
